FAERS Safety Report 6983333-4 (Version None)
Quarter: 2010Q3

REPORT INFORMATION
  Report Type: 
  Country: None (occurrence: None)
  Receive Date: 20100910
  Receipt Date: 20100826
  Transmission Date: 20110219
  Serious: Yes (Other)
  Sender: FDA-Public Use
  Company Number: AUR-APL-2010-02195

PATIENT
  Sex: Male

DRUGS (3)
  1. LISINOPRIL [Suspect]
     Indication: BLOOD PRESSURE MANAGEMENT
     Dosage: 40MG
  2. VIAGRA [Suspect]
     Dosage: 50MG
  3. BYSTOLIC [Suspect]
     Indication: BLOOD PRESSURE MANAGEMENT
     Dosage: 5MG

REACTIONS (2)
  - DRUG INEFFECTIVE [None]
  - PEYRONIE'S DISEASE [None]
